FAERS Safety Report 19528208 (Version 2)
Quarter: 2021Q4

REPORT INFORMATION
  Report Type: Spontaneous
  Country: CA (occurrence: CA)
  Receive Date: 20210713
  Receipt Date: 20211202
  Transmission Date: 20220303
  Serious: Yes (Hospitalization)
  Sender: FDA-Public Use
  Company Number: CA-SA-SAC20210706001233

PATIENT
  Age: 55 Year
  Sex: Female

DRUGS (15)
  1. TAXOTERE [Suspect]
     Active Substance: DOCETAXEL
     Dosage: UNK
     Route: 042
  2. TAXOTERE [Suspect]
     Active Substance: DOCETAXEL
     Dosage: 1000 MG
  3. ACETAMINOPHEN [Suspect]
     Active Substance: ACETAMINOPHEN
     Dosage: 1000 MG, PRN
     Route: 048
  4. BETAMETHASONE [Suspect]
     Active Substance: BETAMETHASONE
     Dosage: UNK UNK, PRN
     Route: 061
  5. CANDESARTAN [Suspect]
     Active Substance: CANDESARTAN
     Dosage: 16 MG, QD
     Route: 048
  6. CARBAMAZEPINE [Suspect]
     Active Substance: CARBAMAZEPINE
     Dosage: 200 MG, BID
     Route: 048
  7. CITALOPRAM [Suspect]
     Active Substance: CITALOPRAM HYDROBROMIDE
     Dosage: 20 MG, QD
     Route: 048
  8. CLONAZEPAM [Suspect]
     Active Substance: CLONAZEPAM
     Dosage: 0.5 MG, BID(P.R.N.)
     Route: 048
  9. FOLIC ACID [Suspect]
     Active Substance: FOLIC ACID
     Dosage: 5 MG, QD
     Route: 048
  10. IBUPROFEN [Suspect]
     Active Substance: IBUPROFEN
     Dosage: 400 MG, PRN
     Route: 048
  11. MOMETASONE FUROATE [Suspect]
     Active Substance: MOMETASONE FUROATE
     Dosage: 50 UG, BID(P.R.N )
     Route: 055
  12. RABEPRAZOLE SODIUM [Suspect]
     Active Substance: RABEPRAZOLE SODIUM
     Dosage: 20 MG, QD
     Route: 048
  13. ALBUTEROL SULFATE [Suspect]
     Active Substance: ALBUTEROL SULFATE
     Dosage: 200 UG, Q4H
     Route: 055
  14. ZOPICLONE [Suspect]
     Active Substance: ZOPICLONE
     Dosage: 3.75-7.5 MG P.R.N
  15. GENTAMICIN SULFATE [Suspect]
     Active Substance: GENTAMICIN SULFATE
     Dosage: UNK UNK, BID(P.R.RN)

REACTIONS (6)
  - Asthenia [Recovering/Resolving]
  - Diarrhoea [Recovering/Resolving]
  - Hypotension [Recovering/Resolving]
  - Pyrexia [Recovering/Resolving]
  - Blood pressure abnormal [Recovering/Resolving]
  - Hyperhidrosis [Recovering/Resolving]

NARRATIVE: CASE EVENT DATE: 20200531
